FAERS Safety Report 17037578 (Version 1)
Quarter: 2019Q4

REPORT INFORMATION
  Report Type: Report from Study
  Country: DE (occurrence: DE)
  Receive Date: 20191115
  Receipt Date: 20191115
  Transmission Date: 20200122
  Serious: Yes (Other)
  Sender: FDA-Public Use
  Company Number: PHHY2018DE067569

PATIENT
  Age: 22 Year
  Sex: Male

DRUGS (2)
  1. CORTISONE [Suspect]
     Active Substance: CORTISONE
     Indication: PRODUCT USED FOR UNKNOWN INDICATION
     Route: 065
  2. GILENYA [Suspect]
     Active Substance: FINGOLIMOD HYDROCHLORIDE
     Indication: MULTIPLE SCLEROSIS
     Dosage: UNK, QD
     Route: 048
     Dates: start: 20141127, end: 20180301

REACTIONS (6)
  - Insomnia [Unknown]
  - Lymphocyte count decreased [Unknown]
  - Swelling face [Unknown]
  - White blood cell count decreased [Unknown]
  - Migraine [Unknown]
  - Depression [Unknown]

NARRATIVE: CASE EVENT DATE: 20170513
